FAERS Safety Report 10509406 (Version 4)
Quarter: 2015Q3

REPORT INFORMATION
  Report Type: Report from Study
  Country: US (occurrence: US)
  Receive Date: 20141009
  Receipt Date: 20150818
  Transmission Date: 20151125
  Serious: No
  Sender: FDA-Public Use
  Company Number: US-GILEAD-2014-0117945

PATIENT
  Age: 57 Year
  Sex: Female

DRUGS (1)
  1. AMBRISENTAN [Suspect]
     Active Substance: AMBRISENTAN
     Indication: PRODUCT USED FOR UNKNOWN INDICATION
     Dosage: 10 MG, QD
     Route: 065
     Dates: start: 20140617

REACTIONS (12)
  - Non-cardiac chest pain [Unknown]
  - Dysstasia [Unknown]
  - Heart rate increased [Unknown]
  - Gait disturbance [Unknown]
  - Dyspnoea [Unknown]
  - Hypersensitivity [Unknown]
  - Asthma [Unknown]
  - Blood potassium abnormal [Unknown]
  - Chronic obstructive pulmonary disease [Unknown]
  - Pain in extremity [Unknown]
  - Nasopharyngitis [Unknown]
  - Fluid retention [Unknown]

NARRATIVE: CASE EVENT DATE: 20141003
